FAERS Safety Report 9686158 (Version 1)
Quarter: 2013Q4

REPORT INFORMATION
  Report Type: Spontaneous
  Country: ZA (occurrence: ZA)
  Receive Date: 20131113
  Receipt Date: 20131113
  Transmission Date: 20140711
  Serious: Yes (Other)
  Sender: FDA-Public Use
  Company Number: ZA-BAYER-2013-136433

PATIENT
  Sex: Male

DRUGS (1)
  1. NEXAVAR 200 [Suspect]
     Indication: RENAL CELL CARCINOMA
     Dosage: DAILY DOSE 800 MG (200 MG BD AS REPORTED)
     Route: 048
     Dates: end: 2013

REACTIONS (1)
  - Renal cell carcinoma [None]
